APPROVED DRUG PRODUCT: IMITREX
Active Ingredient: SUMATRIPTAN
Strength: 20MG/SPRAY
Dosage Form/Route: SPRAY;NASAL
Application: N020626 | Product #003 | TE Code: AB
Applicant: GLAXOSMITHKLINE
Approved: Aug 26, 1997 | RLD: Yes | RS: Yes | Type: RX